FAERS Safety Report 18199249 (Version 1)
Quarter: 2020Q3

REPORT INFORMATION
  Report Type: Spontaneous
  Country: FR (occurrence: FR)
  Receive Date: 20200826
  Receipt Date: 20200826
  Transmission Date: 20201103
  Serious: Yes (Hospitalization, Other)
  Sender: FDA-Public Use
  Company Number: FR-PFIZER INC-2020325454

PATIENT
  Age: 1 Year
  Sex: Female
  Weight: 14.1 kg

DRUGS (6)
  1. UROMITEXAN [Suspect]
     Active Substance: MESNA
     Indication: CHEMOTHERAPY UROTHELIAL TOXICITY ATTENUATION
     Dosage: UNK, WEEKLY (1 UNIT NOT PROVIDED)
     Route: 042
     Dates: start: 20180214, end: 20180816
  2. NAVELBINE [Suspect]
     Active Substance: VINORELBINE TARTRATE
     Indication: RHABDOMYOSARCOMA
     Dosage: 7.4 MG, CYCLIC
     Route: 042
     Dates: start: 20180914
  3. COSMEGEN [Suspect]
     Active Substance: DACTINOMYCIN
     Indication: RHABDOMYOSARCOMA
     Dosage: UNK FREQUENCY (1 UNIT NOT PROVIDED; FREQ:1 S;)
     Route: 042
     Dates: start: 20180214, end: 20180816
  4. VINCRISTINE HOSPIRA [Suspect]
     Active Substance: VINCRISTINE
     Indication: RHABDOMYOSARCOMA
     Dosage: UNK, WEEKLY (1 UNIT NOT PROVIDED)
     Route: 042
     Dates: start: 20180214, end: 20180816
  5. CYCLOPHOSPHAMIDE. [Suspect]
     Active Substance: CYCLOPHOSPHAMIDE
     Indication: RHABDOMYOSARCOMA
     Dosage: 7 MG, CYCLIC
     Route: 048
     Dates: start: 20180914
  6. IFOSFAMIDE EG [Suspect]
     Active Substance: IFOSFAMIDE
     Indication: RHABDOMYOSARCOMA
     Dosage: UNK, WEEKLY (1 UNIT NOT PROVIDED)
     Route: 042
     Dates: start: 20180214, end: 20180816

REACTIONS (1)
  - Renal tubular disorder [Not Recovered/Not Resolved]

NARRATIVE: CASE EVENT DATE: 20190208
